FAERS Safety Report 23612652 (Version 6)
Quarter: 2025Q4

REPORT INFORMATION
  Report Type: Spontaneous
  Country: US (occurrence: US)
  Receive Date: 20240308
  Receipt Date: 20251124
  Transmission Date: 20260117
  Serious: Yes (Hospitalization, Other)
  Sender: CSL BEHRING
  Company Number: US-BEH-2024169586

PATIENT
  Age: 73 Year
  Sex: Female

DRUGS (6)
  1. HIZENTRA [Suspect]
     Active Substance: HUMAN IMMUNOGLOBULIN G
     Indication: Immunodeficiency common variable
     Dosage: 16 GRAM, QW
     Route: 058
     Dates: start: 201611
  2. HIZENTRA [Suspect]
     Active Substance: HUMAN IMMUNOGLOBULIN G
     Indication: Hypergammaglobulinaemia
  3. FASENRA [Concomitant]
     Active Substance: BENRALIZUMAB
     Indication: Pneumonia
  4. FASENRA [Concomitant]
     Active Substance: BENRALIZUMAB
     Indication: Chronic sinusitis
  5. FASENRA [Concomitant]
     Active Substance: BENRALIZUMAB
     Indication: Rhinitis
  6. FASENRA [Concomitant]
     Active Substance: BENRALIZUMAB
     Indication: Asthma

REACTIONS (14)
  - Limb operation [Unknown]
  - Asthma [Recovered/Resolved]
  - Asthma [Recovered/Resolved]
  - Pneumonia [Recovered/Resolved]
  - Colon cancer [Unknown]
  - Neoplasm malignant [Unknown]
  - Fatigue [Unknown]
  - Back pain [Unknown]
  - Dyspnoea [Unknown]
  - Peripheral swelling [Unknown]
  - Joint swelling [Unknown]
  - Peripheral swelling [Unknown]
  - Anaemia [Unknown]
  - Weight decreased [Unknown]
